FAERS Safety Report 15641516 (Version 14)
Quarter: 2020Q4

REPORT INFORMATION
  Report Type: Other
  Country: CA (occurrence: CA)
  Receive Date: 20181120
  Receipt Date: 20201203
  Transmission Date: 20210113
  Serious: Yes (Other)
  Sender: FDA-Public Use
  Company Number: CA-ROCHE-2217741

PATIENT
  Age: 29 Year
  Sex: Male

DRUGS (14)
  1. XOLAIR [Suspect]
     Active Substance: OMALIZUMAB
     Route: 058
     Dates: start: 20190220
  2. XOLAIR [Suspect]
     Active Substance: OMALIZUMAB
     Route: 058
  3. ADVAIR HFA [Concomitant]
     Active Substance: FLUTICASONE PROPIONATE\SALMETEROL XINAFOATE
     Indication: PRODUCT USED FOR UNKNOWN INDICATION
     Route: 065
  4. XOLAIR [Suspect]
     Active Substance: OMALIZUMAB
     Route: 058
     Dates: start: 20190122
  5. XOLAIR [Suspect]
     Active Substance: OMALIZUMAB
     Route: 058
     Dates: start: 20191003
  6. XOLAIR [Suspect]
     Active Substance: OMALIZUMAB
     Indication: ASTHMA
     Route: 058
     Dates: start: 20130807
  7. XOLAIR [Suspect]
     Active Substance: OMALIZUMAB
     Route: 058
     Dates: start: 20181004
  8. SINGULAIR [Concomitant]
     Active Substance: MONTELUKAST SODIUM
     Indication: PRODUCT USED FOR UNKNOWN INDICATION
     Route: 065
  9. XOLAIR [Suspect]
     Active Substance: OMALIZUMAB
     Route: 058
     Dates: start: 2019
  10. XOLAIR [Suspect]
     Active Substance: OMALIZUMAB
     Route: 058
     Dates: start: 20191223
  11. XOLAIR [Suspect]
     Active Substance: OMALIZUMAB
     Route: 058
     Dates: start: 20190206
  12. XOLAIR [Suspect]
     Active Substance: OMALIZUMAB
     Route: 058
     Dates: start: 20191210
  13. XOLAIR [Suspect]
     Active Substance: OMALIZUMAB
     Route: 058
     Dates: start: 20181029
  14. XOLAIR [Suspect]
     Active Substance: OMALIZUMAB
     Route: 058
     Dates: start: 20190808

REACTIONS (21)
  - Incorrect dose administered [Unknown]
  - Eczema infected [Unknown]
  - Pain in extremity [Recovering/Resolving]
  - Nasopharyngitis [Unknown]
  - Sinusitis [Unknown]
  - Hyperhidrosis [Unknown]
  - Fall [Unknown]
  - Ligament sprain [Unknown]
  - Dyspnoea [Unknown]
  - Nervousness [Unknown]
  - Eczema [Unknown]
  - Rhinorrhoea [Not Recovered/Not Resolved]
  - Bronchitis [Recovered/Resolved]
  - Ligament rupture [Unknown]
  - Productive cough [Unknown]
  - Respiratory rate increased [Unknown]
  - Dyspnoea exertional [Unknown]
  - Secretion discharge [Unknown]
  - Mobility decreased [Unknown]
  - Oedema peripheral [Recovering/Resolving]
  - Crepitations [Unknown]

NARRATIVE: CASE EVENT DATE: 2015
